FAERS Safety Report 19889881 (Version 1)
Quarter: 2021Q3

REPORT INFORMATION
  Report Type: Spontaneous
  Country: RU (occurrence: RU)
  Receive Date: 20210927
  Receipt Date: 20210927
  Transmission Date: 20211014
  Serious: Yes (Hospitalization)
  Sender: FDA-Public Use
  Company Number: IT-SUNOVION-2021SUN003752

PATIENT
  Age: 21 Year
  Sex: Male

DRUGS (1)
  1. LURASIDONE HYDROCHLORIDE. [Suspect]
     Active Substance: LURASIDONE HYDROCHLORIDE
     Indication: PRODUCT USED FOR UNKNOWN INDICATION
     Dosage: UNK
     Route: 048

REACTIONS (2)
  - No adverse event [Unknown]
  - Drug ineffective [Unknown]
